FAERS Safety Report 16048229 (Version 4)
Quarter: 2019Q2

REPORT INFORMATION
  Report Type: Spontaneous
  Country: US (occurrence: US)
  Receive Date: 20190307
  Receipt Date: 20190413
  Transmission Date: 20190711
  Serious: Yes (Hospitalization, Other)
  Sender: FDA-Public Use
  Company Number: US-009507513-1902USA012204

PATIENT
  Sex: Male

DRUGS (6)
  1. IBRANCE [Suspect]
     Active Substance: PALBOCICLIB
     Indication: SOFT TISSUE NEOPLASM
     Dosage: 100 MILLIGRAM, EVERY DAY FOR 21 DAYS IN 28 DAY CYCLE
     Route: 048
     Dates: start: 20180425, end: 2018
  2. ZOLINZA [Suspect]
     Active Substance: VORINOSTAT
     Indication: SOFT TISSUE NEOPLASM
     Dosage: 300 MILLIGRAM, QD X 5 DAYS PER WEEK
     Route: 048
     Dates: start: 20180425, end: 2018
  3. PRECEDEX [Concomitant]
     Active Substance: DEXMEDETOMIDINE HYDROCHLORIDE
     Dosage: UNK
  4. IBRANCE [Suspect]
     Active Substance: PALBOCICLIB
     Indication: CONNECTIVE TISSUE NEOPLASM
     Dosage: 100 MILLIGRAM, EVERY DAY FOR 21 DAYS IN 28 DAY CYCLE
     Route: 048
     Dates: start: 2018
  5. MORPHINE [Concomitant]
     Active Substance: MORPHINE
  6. ZOLINZA [Suspect]
     Active Substance: VORINOSTAT
     Indication: CONNECTIVE TISSUE NEOPLASM
     Dosage: 300 MILLIGRAM, QD X 5 DAYS PER WEEK
     Route: 048
     Dates: start: 2018

REACTIONS (3)
  - Thoracic haemorrhage [Not Recovered/Not Resolved]
  - Pleural effusion [Not Recovered/Not Resolved]
  - Product dose omission [Unknown]

NARRATIVE: CASE EVENT DATE: 2018
